FAERS Safety Report 10077241 (Version 1)
Quarter: 2014Q2

REPORT INFORMATION
  Report Type: Spontaneous
  Country: US (occurrence: US)
  Receive Date: 20140414
  Receipt Date: 20140414
  Transmission Date: 20141212
  Serious: No
  Sender: FDA-Public Use
  Company Number: US-BANPHARM-20131090

PATIENT
  Sex: Female

DRUGS (1)
  1. NAPROXEN SODIUM 220 MG [Suspect]
     Indication: ACCIDENTAL EXPOSURE TO PRODUCT
     Dosage: 1 DF,
     Route: 048
     Dates: start: 20130315, end: 20130315

REACTIONS (2)
  - Glossodynia [Unknown]
  - Accidental exposure to product [Unknown]
